FAERS Safety Report 22259486 (Version 1)
Quarter: 2023Q2

REPORT INFORMATION
  Report Type: Spontaneous
  Country: BR (occurrence: None)
  Receive Date: 20230427
  Receipt Date: 20230427
  Transmission Date: 20230721
  Serious: Yes (Hospitalization, Other)
  Sender: FDA-Public Use
  Company Number: 2023A095333

PATIENT
  Age: 78 Year
  Sex: Female

DRUGS (1)
  1. ACALABRUTINIB [Suspect]
     Active Substance: ACALABRUTINIB
     Indication: B-cell small lymphocytic lymphoma
     Route: 048

REACTIONS (3)
  - Thrombosis [Unknown]
  - Tumour lysis syndrome [Recovered/Resolved]
  - Haematoma [Unknown]
